FAERS Safety Report 21299439 (Version 1)
Quarter: 2022Q3

REPORT INFORMATION
  Report Type: Report from Study
  Country: FR (occurrence: FR)
  Receive Date: 20220906
  Receipt Date: 20220906
  Transmission Date: 20221027
  Serious: Yes (Life-Threatening, Hospitalization, Other)
  Sender: FDA-Public Use
  Company Number: FR-AVENTIS-200110480FR

PATIENT
  Age: 54 Year
  Sex: Female

DRUGS (2)
  1. DOCETAXEL [Suspect]
     Active Substance: DOCETAXEL
     Indication: Breast cancer
     Dosage: 75 MG/M2, QCY
     Dates: start: 2001
  2. DOXORUBICIN [Suspect]
     Active Substance: DOXORUBICIN
     Indication: Breast cancer
     Dosage: 50 MG/M2, QCY
     Dates: start: 2001

REACTIONS (5)
  - Peritonitis [Recovered/Resolved]
  - Febrile neutropenia [Unknown]
  - Septic shock [Unknown]
  - Gastrointestinal disorder [Unknown]
  - Diverticulum [Unknown]

NARRATIVE: CASE EVENT DATE: 20010101
